FAERS Safety Report 5669546-2 (Version None)
Quarter: 2008Q1

REPORT INFORMATION
  Report Type: 
  Country: None (occurrence: None)
  Receive Date: 20080317
  Receipt Date: 20080312
  Transmission Date: 20080703
  Serious: Yes (Life-Threatening, Other)
  Sender: FDA-Public Use
  Company Number: AU-JNJFOC-20080301841

PATIENT
  Sex: Male
  Weight: 88 kg

DRUGS (8)
  1. TMC114 [Suspect]
     Route: 048
  2. TMC114 [Suspect]
     Indication: HIV INFECTION
     Route: 048
  3. EFAVIRENZ [Suspect]
     Indication: HIV INFECTION
     Route: 065
  4. RITONAVIR [Concomitant]
     Indication: HIV INFECTION
     Route: 048
  5. ATAZANAVIR SULFATE [Concomitant]
     Indication: HIV INFECTION
     Route: 065
  6. TENOFOVIR [Concomitant]
     Indication: HIV INFECTION
     Route: 065
  7. T20 [Concomitant]
     Indication: HIV INFECTION
     Route: 065
  8. VALACYCLOVIR [Concomitant]
     Indication: HERPES SIMPLEX
     Route: 065

REACTIONS (3)
  - DEPRESSION [None]
  - PSYCHOTIC DISORDER [None]
  - SUICIDAL IDEATION [None]
